FAERS Safety Report 7304304-4 (Version None)
Quarter: 2011Q1

REPORT INFORMATION
  Report Type: 
  Country: None (occurrence: None)
  Receive Date: 20110221
  Receipt Date: 20110214
  Transmission Date: 20110831
  Serious: Yes (Death)
  Sender: FDA-Public Use
  Company Number: DE-BAXTER-2011BH002613

PATIENT
  Sex: Male

DRUGS (4)
  1. EXTRANEAL [Suspect]
     Indication: PERITONEAL DIALYSIS
     Route: 033
     Dates: start: 20100101, end: 20110131
  2. PHYSIOSOL IN PLASTIC CONTAINER [Suspect]
     Indication: PERITONEAL DIALYSIS
     Route: 033
     Dates: start: 20100101, end: 20110131
  3. EXTRANEAL [Suspect]
     Indication: CARDIAC FAILURE
     Route: 033
     Dates: start: 20100101, end: 20110131
  4. PHYSIOSOL IN PLASTIC CONTAINER [Suspect]
     Indication: CARDIAC FAILURE
     Route: 033
     Dates: start: 20100101, end: 20110131

REACTIONS (1)
  - CARDIAC FAILURE [None]
